FAERS Safety Report 15077199 (Version 5)
Quarter: 2019Q4

REPORT INFORMATION
  Report Type: Report from Study
  Country: US (occurrence: US)
  Receive Date: 20180627
  Receipt Date: 20191023
  Transmission Date: 20200122
  Serious: Yes (Hospitalization)
  Sender: FDA-Public Use
  Company Number: US-ACTELION-A-NJ2018-173157

PATIENT
  Age: 75 Year
  Sex: Female
  Weight: 56.24 kg

DRUGS (4)
  1. REMODULIN [Concomitant]
     Active Substance: TREPROSTINIL
  2. OPSUMIT [Suspect]
     Active Substance: MACITENTAN
     Indication: PULMONARY ARTERIAL HYPERTENSION
     Dosage: 10 MG, QD
     Route: 048
     Dates: start: 20180404
  3. TORSEMIDE. [Concomitant]
     Active Substance: TORSEMIDE
  4. LASIX [Concomitant]
     Active Substance: FUROSEMIDE

REACTIONS (9)
  - Diarrhoea [Unknown]
  - Fluid retention [Recovering/Resolving]
  - Chills [Unknown]
  - Dizziness [Unknown]
  - Nasal congestion [Unknown]
  - Oxygen saturation decreased [Unknown]
  - Asthenia [Unknown]
  - Pneumonia [Unknown]
  - Device alarm issue [Not Recovered/Not Resolved]

NARRATIVE: CASE EVENT DATE: 20180508
